FAERS Safety Report 23490631 (Version 1)
Quarter: 2024Q1

REPORT INFORMATION
  Report Type: Spontaneous
  Country: US (occurrence: None)
  Receive Date: 20240206
  Receipt Date: 20240206
  Transmission Date: 20240409
  Serious: No
  Sender: FDA-Public Use
  Company Number: US-ROCHE-3437925

PATIENT
  Sex: Male

DRUGS (8)
  1. NUTROPIN AQ [Suspect]
     Active Substance: SOMATROPIN
     Indication: Hypopituitarism
     Dosage: NUTROPIN AQ NUSPIN 20MG/2ML
     Route: 058
  2. NUTROPIN AQ [Suspect]
     Active Substance: SOMATROPIN
  3. NUTROPIN AQ [Suspect]
     Active Substance: SOMATROPIN
     Indication: Endocrine disorder
  4. NUTROPIN AQ [Suspect]
     Active Substance: SOMATROPIN
  5. NUTROPIN AQ [Suspect]
     Active Substance: SOMATROPIN
     Indication: Malnutrition
  6. NUTROPIN AQ [Suspect]
     Active Substance: SOMATROPIN
  7. NUTROPIN AQ [Suspect]
     Active Substance: SOMATROPIN
     Indication: Metabolic disorder
  8. NUTROPIN AQ [Suspect]
     Active Substance: SOMATROPIN

REACTIONS (2)
  - Product storage error [Unknown]
  - No adverse event [Unknown]
